FAERS Safety Report 10386250 (Version 2)
Quarter: 2014Q3

REPORT INFORMATION
  Report Type: Report from Study
  Country: BR (occurrence: BR)
  Receive Date: 20140815
  Receipt Date: 20140826
  Transmission Date: 20150326
  Serious: Yes (Death, Hospitalization, Other)
  Sender: FDA-Public Use
  Company Number: PHHY2014BR101277

PATIENT
  Sex: Male
  Weight: 60 kg

DRUGS (5)
  1. ATENOLOL. [Concomitant]
     Active Substance: ATENOLOL
     Indication: BLOOD PRESSURE ABNORMAL
     Dosage: UNK UKN, UNK
  2. PROLOPA [Concomitant]
     Active Substance: BENSERAZIDE\LEVODOPA
     Indication: PARKINSON^S DISEASE
     Dosage: UNK UKN, UNK
     Dates: end: 20140718
  3. EXELON PATCH [Suspect]
     Active Substance: RIVASTIGMINE
     Indication: PARKINSON^S DISEASE
     Dosage: 9.5 MG, EVERY 24 HOURS
     Route: 062
     Dates: start: 2013, end: 20140718
  4. OLANZAPINE. [Concomitant]
     Active Substance: OLANZAPINE
     Indication: PARKINSON^S DISEASE
     Dosage: UNK UKN, UNK
     Dates: end: 20140718
  5. BENSERAZIDE HYDROCHLORIDE W/LEVODOPA [Concomitant]
     Dosage: UNK UKN, UNK

REACTIONS (6)
  - Pneumonia [Fatal]
  - Tremor [Unknown]
  - Weight decreased [Unknown]
  - Infection [Fatal]
  - Eating disorder [Unknown]
  - Bacterial infection [Fatal]
